FAERS Safety Report 21113773 (Version 1)
Quarter: 2022Q3

REPORT INFORMATION
  Report Type: Spontaneous
  Country: US (occurrence: US)
  Receive Date: 20220721
  Receipt Date: 20220721
  Transmission Date: 20221026
  Serious: No
  Sender: FDA-Public Use
  Company Number: US-MYLANLABS-2022M1078992

PATIENT
  Sex: Male
  Weight: 95.25 kg

DRUGS (2)
  1. MUSE [Suspect]
     Active Substance: ALPROSTADIL
     Indication: Erectile dysfunction
     Dosage: 1000 MICROGRAM (15 MINUTES BEFORE INTERCOURSE)
     Route: 065
     Dates: start: 202203
  2. NOVOLOG [Concomitant]
     Active Substance: INSULIN ASPART
     Indication: Diabetes mellitus
     Dosage: UNK (70/30)
     Route: 065

REACTIONS (2)
  - Drug ineffective [Unknown]
  - Product use issue [Unknown]
